FAERS Safety Report 14600135 (Version 1)
Quarter: 2018Q1

REPORT INFORMATION
  Report Type: Spontaneous
  Country: FR (occurrence: FR)
  Receive Date: 20180305
  Receipt Date: 20180305
  Transmission Date: 20180509
  Serious: Yes (Hospitalization)
  Sender: FDA-Public Use
  Company Number: FR-PFIZER INC-2018086437

PATIENT
  Age: 2 Year
  Sex: Female
  Weight: 12 kg

DRUGS (2)
  1. NEORAL [Suspect]
     Active Substance: CYCLOSPORINE
     Indication: APLASIA
     Dosage: 30 MG, ALTERNATE DAY
     Dates: start: 20170819
  2. VFEND [Suspect]
     Active Substance: VORICONAZOLE
     Indication: NEUTROPENIA
     Dosage: 130 MG, ALTERNATE DAY
     Dates: start: 20171108

REACTIONS (3)
  - Drug administration error [Recovered/Resolved]
  - Hepatitis [Recovered/Resolved]
  - Immunosuppressant drug level increased [Recovered/Resolved]

NARRATIVE: CASE EVENT DATE: 20171108
